FAERS Safety Report 4722250-7 (Version None)
Quarter: 2005Q3

REPORT INFORMATION
  Report Type: 
  Country: None (occurrence: None)
  Receive Date: 20050722
  Receipt Date: 20040920
  Transmission Date: 20060218
  Serious: No
  Sender: FDA-Public Use
  Company Number: US-GLAXOSMITHKLINE-A0526417A

PATIENT
  Age: 62 Year
  Sex: Male

DRUGS (8)
  1. AVANDIA [Suspect]
     Dosage: 4MG TWICE PER DAY
     Route: 048
  2. LIPITOR [Concomitant]
  3. ASPIRIN [Concomitant]
  4. LOTREL [Concomitant]
  5. GLUCOPHAGE [Concomitant]
  6. GLUCOVANCE [Concomitant]
  7. MULTI-VITAMIN [Concomitant]
  8. XALATAN [Concomitant]

REACTIONS (1)
  - WEIGHT INCREASED [None]
